FAERS Safety Report 8797376 (Version 2)
Quarter: 2015Q1

REPORT INFORMATION
  Report Type: Report from Study
  Country: US (occurrence: US)
  Receive Date: 20120919
  Receipt Date: 20150311
  Transmission Date: 20150721
  Serious: Yes (Death)
  Sender: FDA-Public Use
  Company Number: US-ROCHE-1123569

PATIENT
  Sex: Male

DRUGS (7)
  1. CISPLATIN. [Concomitant]
     Active Substance: CISPLATIN
     Route: 042
  2. GEMZAR [Concomitant]
     Active Substance: GEMCITABINE HYDROCHLORIDE
     Route: 042
  3. ARANESP [Concomitant]
     Active Substance: DARBEPOETIN ALFA
     Route: 065
  4. AVASTIN [Suspect]
     Active Substance: BEVACIZUMAB
     Indication: LUNG NEOPLASM MALIGNANT
     Route: 042
     Dates: start: 20060614
  5. NEULASTA [Concomitant]
     Active Substance: PEGFILGRASTIM
     Route: 065
  6. GEMZAR [Concomitant]
     Active Substance: GEMCITABINE HYDROCHLORIDE
     Route: 042
  7. ALOXI [Concomitant]
     Active Substance: PALONOSETRON HYDROCHLORIDE
     Route: 065

REACTIONS (6)
  - Off label use [Unknown]
  - Nausea [Unknown]
  - Pain [Unknown]
  - Fatigue [Unknown]
  - Death [Fatal]
  - Vomiting [Unknown]
